FAERS Safety Report 8837269 (Version 2)
Quarter: 2014Q1

REPORT INFORMATION
  Report Type: Spontaneous
  Country: US (occurrence: US)
  Receive Date: 20121012
  Receipt Date: 20140207
  Transmission Date: 20141002
  Serious: Yes (Life-Threatening, Hospitalization, Other)
  Sender: FDA-Public Use
  Company Number: US-JNJFOC-20121004646

PATIENT
  Sex: Female

DRUGS (6)
  1. DOXORUBICIN [Suspect]
     Indication: BREAST CANCER
     Dosage: 4 CYCLES
     Route: 042
  2. BEVACIZUMAB [Suspect]
     Indication: BREAST CANCER
     Dosage: 1 YEAR
     Route: 042
  3. BEVACIZUMAB [Suspect]
     Indication: BREAST CANCER
     Dosage: 1 YEAR
     Route: 042
  4. CYCLOPHOSPHAMIDE [Suspect]
     Indication: BREAST CANCER
     Route: 065
  5. PACLITAXEL [Suspect]
     Indication: BREAST CANCER
     Route: 042
  6. PEGFILGRASTIM [Concomitant]
     Route: 058

REACTIONS (34)
  - Febrile neutropenia [Unknown]
  - Hypertension [Unknown]
  - Neutropenia [Unknown]
  - Neuropathy peripheral [Unknown]
  - Hypertension [Unknown]
  - Impaired healing [Unknown]
  - Gastrointestinal disorder [Unknown]
  - Pyelonephritis [Unknown]
  - Chest pain [Unknown]
  - Biliary colic [Unknown]
  - Febrile neutropenia [Unknown]
  - Dyspnoea [Unknown]
  - Headache [Unknown]
  - Fatigue [Unknown]
  - Ejection fraction decreased [Unknown]
  - Peripheral sensory neuropathy [Unknown]
  - Pain [Unknown]
  - Breast cancer [Unknown]
  - Nausea [Unknown]
  - Epistaxis [Unknown]
  - Mucosal inflammation [Unknown]
  - Cough [Unknown]
  - Proteinuria [Unknown]
  - Cellulitis [Unknown]
  - Convulsion [Unknown]
  - Multiple sclerosis [Unknown]
  - Soft tissue infection [Unknown]
  - Hypothyroidism [Unknown]
  - Atrial fibrillation [Unknown]
  - Supraventricular tachycardia [Unknown]
  - Hypersensitivity [Unknown]
  - Decreased appetite [Unknown]
  - Dehydration [Unknown]
  - Migraine [Unknown]
